FAERS Safety Report 10689327 (Version 1)
Quarter: 2014Q4

REPORT INFORMATION
  Report Type: Spontaneous
  Country: IR (occurrence: None)
  Receive Date: 20141231
  Receipt Date: 20141231
  Transmission Date: 20150529
  Serious: Yes (Hospitalization)
  Sender: FDA-Public Use
  Company Number: UCM201412-000274

PATIENT
  Age: 79 Year
  Sex: Male

DRUGS (3)
  1. TOPIRAMATE (TOPIRAMATE) (TOPIRAMATE) [Suspect]
     Active Substance: TOPIRAMATE
     Indication: ESSENTIAL TREMOR
  2. PROPRANOLOL [Concomitant]
     Active Substance: PROPRANOLOL\PROPRANOLOL HYDROCHLORIDE
  3. ASPIRIN. [Concomitant]
     Active Substance: ASPIRIN

REACTIONS (2)
  - Status epilepticus [None]
  - Seizure [None]
